FAERS Safety Report 8885441 (Version 4)
Quarter: 2013Q3

REPORT INFORMATION
  Report Type: Spontaneous
  Country: US (occurrence: US)
  Receive Date: 20121101
  Receipt Date: 20130708
  Transmission Date: 20140515
  Serious: Yes (Hospitalization, Disabling, Other)
  Sender: FDA-Public Use
  Company Number: US-009507513-1210USA010233

PATIENT
  Sex: Female
  Weight: 65.76 kg

DRUGS (8)
  1. FOSAMAX [Suspect]
     Indication: MENOPAUSE
     Dosage: 70 MG, QW
     Route: 048
     Dates: end: 200605
  2. FOSAMAX [Suspect]
     Indication: BONE DISORDER
  3. FOSAMAX PLUS D [Suspect]
     Indication: MENOPAUSE
     Dosage: 70 MG, QW
     Route: 048
     Dates: start: 200605, end: 200701
  4. FOSAMAX PLUS D [Suspect]
     Indication: BONE DISORDER
  5. VITAMINS (UNSPECIFIED) [Concomitant]
     Dosage: UNK UNK, QD
     Dates: start: 1997
  6. CALCIUM (UNSPECIFIED) [Concomitant]
     Dosage: UNK UNK, QD
     Dates: start: 1997
  7. CYANOCOBALAMIN [Concomitant]
     Dosage: UNK UNK, QD
     Dates: start: 1997
  8. VITAMIN D (UNSPECIFIED) [Concomitant]
     Dosage: UNK UNK, QD
     Dates: start: 1997

REACTIONS (20)
  - Femur fracture [Recovered/Resolved]
  - Femur fracture [Unknown]
  - Osteoporosis [Unknown]
  - Stress fracture [Unknown]
  - Low turnover osteopathy [Unknown]
  - Intramedullary rod insertion [Unknown]
  - Fall [Unknown]
  - Vitamin D deficiency [Unknown]
  - Adverse event [Unknown]
  - Adverse event [Unknown]
  - Adverse event [Unknown]
  - Adverse event [Unknown]
  - Hyperchlorhydria [Unknown]
  - Infection [Unknown]
  - Adverse event [Unknown]
  - Osteopenia [Unknown]
  - Cough [Unknown]
  - Gastrooesophageal reflux disease [Unknown]
  - Off label use [Unknown]
  - Off label use [Unknown]
